FAERS Safety Report 16854823 (Version 1)
Quarter: 2019Q3

REPORT INFORMATION
  Report Type: Report from Study
  Country: US (occurrence: US)
  Receive Date: 20190926
  Receipt Date: 20190926
  Transmission Date: 20191005
  Serious: Yes (Hospitalization, Other)
  Sender: FDA-Public Use
  Company Number: US-TESARO-2019-TSO02739-US

PATIENT
  Age: 58 Year
  Sex: Male

DRUGS (3)
  1. NIRAPARIB [Suspect]
     Active Substance: NIRAPARIB
     Dosage: 300 MG BETWEEN 6-7 PM WITH FOOD
     Route: 048
     Dates: start: 20190723, end: 20190816
  2. NIRAPARIB [Suspect]
     Active Substance: NIRAPARIB
     Dosage: 300 MG, QD 8:30 PM WITHOUT FOOD
     Dates: start: 20190723
  3. NIRAPARIB [Suspect]
     Active Substance: NIRAPARIB
     Dosage: 100 MG, QD
     Dates: start: 20190905, end: 20190906

REACTIONS (19)
  - Anaemia [Recovered/Resolved]
  - Nodule [Unknown]
  - Decreased appetite [Not Recovered/Not Resolved]
  - Thrombocytopenia [Not Recovered/Not Resolved]
  - Heart rate increased [Unknown]
  - Jaundice [Unknown]
  - Pain [Unknown]
  - Fatigue [Not Recovered/Not Resolved]
  - Vomiting [Recovering/Resolving]
  - Blood pressure increased [Not Recovered/Not Resolved]
  - Cough [Not Recovered/Not Resolved]
  - Pruritus [Unknown]
  - Abdominal distension [Unknown]
  - Abdominal pain [Unknown]
  - Liver function test increased [Unknown]
  - Hepatic pain [Unknown]
  - Product use in unapproved indication [Unknown]
  - Metastases to lung [Unknown]
  - Drug intolerance [Unknown]

NARRATIVE: CASE EVENT DATE: 201908
